FAERS Safety Report 7463706-6 (Version None)
Quarter: 2011Q2

REPORT INFORMATION
  Report Type: 
  Country: None (occurrence: None)
  Receive Date: 20110506
  Receipt Date: 20110503
  Transmission Date: 20111010
  Serious: Yes (Other)
  Sender: FDA-Public Use
  Company Number: GB-BRISTOL-MYERS SQUIBB COMPANY-15600216

PATIENT
  Age: 3 Decade
  Sex: Male

DRUGS (2)
  1. CLOZAPINE [Suspect]
  2. ABILIFY [Suspect]

REACTIONS (1)
  - PSYCHOTIC DISORDER [None]
